FAERS Safety Report 4523319-2 (Version None)
Quarter: 2004Q4

REPORT INFORMATION
  Report Type: 
  Country: None (occurrence: None)
  Receive Date: 20041208
  Receipt Date: 20041122
  Transmission Date: 20050328
  Serious: Yes (Hospitalization, Other)
  Sender: FDA-Public Use
  Company Number: 2004BI000111

PATIENT
  Age: 49 Year
  Sex: Female

DRUGS (2)
  1. AVONEX [Suspect]
     Indication: MULTIPLE SCLEROSIS
     Dosage: 30 UG; QW; IM
     Route: 030
     Dates: start: 19971001
  2. AVONEX [Suspect]
     Indication: MULTIPLE SCLEROSIS
     Dosage: 30 UQ; QW; IM
     Route: 030

REACTIONS (7)
  - AFFECT LABILITY [None]
  - BALANCE DISORDER [None]
  - BREAST CANCER [None]
  - FALL [None]
  - INJECTION SITE PAIN [None]
  - NAUSEA [None]
  - TREMOR [None]
